FAERS Safety Report 7728498-1 (Version None)
Quarter: 2011Q3

REPORT INFORMATION
  Report Type: 
  Country: None (occurrence: None)
  Receive Date: 20110905
  Receipt Date: 20110824
  Transmission Date: 20111222
  Serious: Yes (Hospitalization)
  Sender: FDA-Public Use
  Company Number: US-SANOFI-AVENTIS-2011SA055589

PATIENT
  Sex: Female

DRUGS (1)
  1. GLYBURIDE [Suspect]
     Indication: TYPE 2 DIABETES MELLITUS
     Route: 048
     Dates: start: 19980101, end: 20110501

REACTIONS (3)
  - BREAST CANCER [None]
  - PULMONARY EMBOLISM [None]
  - BREAST CANCER RECURRENT [None]
